FAERS Safety Report 4971645-5 (Version None)
Quarter: 2006Q2

REPORT INFORMATION
  Report Type: 
  Country: None (occurrence: None)
  Receive Date: 20060413
  Receipt Date: 20060403
  Transmission Date: 20061013
  Serious: Yes (Hospitalization)
  Sender: FDA-Public Use
  Company Number: FR-BRISTOL-MYERS SQUIBB COMPANY-13335831

PATIENT
  Age: 57 Year
  Sex: Female

DRUGS (2)
  1. LOPRIL TABS [Suspect]
     Indication: ESSENTIAL HYPERTENSION
     Route: 048
     Dates: end: 20050215
  2. LOXEN [Suspect]
     Indication: ESSENTIAL HYPERTENSION
     Dates: start: 20050216

REACTIONS (3)
  - ARTERY DISSECTION [None]
  - CEREBRAL INFARCTION [None]
  - ISCHAEMIC STROKE [None]
